FAERS Safety Report 4614176-4 (Version None)
Quarter: 2005Q1

REPORT INFORMATION
  Report Type: 
  Country: None (occurrence: None)
  Receive Date: 20050316
  Receipt Date: 20050304
  Transmission Date: 20050727
  Serious: Yes (Hospitalization)
  Sender: FDA-Public Use
  Company Number: UKP05000095

PATIENT
  Sex: 0

DRUGS (2)
  1. ACTONEL [Suspect]
     Dosage: ORAL
     Route: 048
  2. OMEPRAZOLE [Suspect]

REACTIONS (2)
  - GASTROINTESTINAL DISORDER [None]
  - GASTROINTESTINAL HAEMORRHAGE [None]
